FAERS Safety Report 11609176 (Version 2)
Quarter: 2015Q4

REPORT INFORMATION
  Report Type: Report from Study
  Country: US (occurrence: US)
  Receive Date: 20151007
  Receipt Date: 20151111
  Transmission Date: 20160304
  Serious: Yes (Congenital Anomaly)
  Sender: FDA-Public Use
  Company Number: US-ABBVIE-15P-163-1472331-00

PATIENT
  Sex: Female

DRUGS (2)
  1. KALETRA [Suspect]
     Active Substance: LOPINAVIR\RITONAVIR
     Indication: MATERNAL EXPOSURE TIMING UNSPECIFIED
     Route: 064
  2. EPIVIR [Suspect]
     Active Substance: LAMIVUDINE
     Indication: MATERNAL EXPOSURE TIMING UNSPECIFIED
     Route: 064

REACTIONS (11)
  - Ventricular septal defect [Unknown]
  - Ectopic kidney [Unknown]
  - Renal fusion anomaly [Unknown]
  - Cytogenetic abnormality [Unknown]
  - Foetal growth restriction [Unknown]
  - Congenital coronary artery malformation [Unknown]
  - Renal hypoplasia [Unknown]
  - Right-to-left cardiac shunt [Unknown]
  - Cleft palate [Unknown]
  - Small for dates baby [Unknown]
  - Foetal exposure during pregnancy [Unknown]
